FAERS Safety Report 19404957 (Version 1)
Quarter: 2021Q2

REPORT INFORMATION
  Report Type: Spontaneous
  Country: GR (occurrence: GR)
  Receive Date: 20210611
  Receipt Date: 20210611
  Transmission Date: 20210717
  Serious: Yes (Other)
  Sender: FDA-Public Use
  Company Number: GR-ALS-000301

PATIENT
  Age: 52 Year
  Sex: Male

DRUGS (1)
  1. QUETIAPINE. [Suspect]
     Active Substance: QUETIAPINE
     Indication: ANXIETY DISORDER
     Route: 065

REACTIONS (11)
  - Haemophilus infection [Unknown]
  - Pulmonary granuloma [Unknown]
  - Lymphadenectomy [Unknown]
  - Lung lobectomy [Unknown]
  - Thoracotomy [Unknown]
  - Pneumonitis [Unknown]
  - Lymphadenopathy [Unknown]
  - Periodontitis [Unknown]
  - Product use in unapproved indication [Unknown]
  - Poor personal hygiene [Unknown]
  - Pulmonary mass [Unknown]
